FAERS Safety Report 9708288 (Version 2)
Quarter: 2014Q1

REPORT INFORMATION
  Report Type: Spontaneous
  Country: BR (occurrence: BR)
  Receive Date: 20131125
  Receipt Date: 20140228
  Transmission Date: 20141002
  Serious: Yes (Other)
  Sender: FDA-Public Use
  Company Number: BR-UCBSA-103905

PATIENT
  Sex: Female

DRUGS (7)
  1. CIMZIA [Suspect]
     Indication: RHEUMATOID ARTHRITIS
     Dosage: DOSE: 200 MG/ML, 2 SYRINGE
     Route: 058
     Dates: start: 201310, end: 201311
  2. ATENOLOL [Suspect]
     Indication: ARRHYTHMIA
     Dosage: STRENGTH: 25 MG
     Route: 048
  3. CLORANA [Suspect]
     Indication: HYPERTENSION
     Dosage: STRENGTH: 25 MG
  4. ROSUVASTATIN [Suspect]
     Indication: BLOOD CHOLESTEROL INCREASED
     Dosage: STRENGTH: 10 MG
  5. ENALAPRIL MALEATE [Concomitant]
     Indication: HYPERTENSION
  6. MAREVAN [Concomitant]
     Indication: ANTICOAGULANT THERAPY
  7. PREDNISONE [Concomitant]

REACTIONS (4)
  - Haemorrhage [Recovered/Resolved]
  - Diarrhoea haemorrhagic [Recovered/Resolved]
  - Pain [Recovered/Resolved]
  - Blood pressure decreased [Recovered/Resolved]
